FAERS Safety Report 14822166 (Version 3)
Quarter: 2018Q2

REPORT INFORMATION
  Report Type: Spontaneous
  Country: US (occurrence: US)
  Receive Date: 20180427
  Receipt Date: 20180627
  Transmission Date: 20180711
  Serious: Yes (Death, Hospitalization, Other)
  Sender: FDA-Public Use
  Company Number: US-009507513-1804USA007847

PATIENT
  Age: 73 Year
  Sex: Male

DRUGS (1)
  1. TEMODAR [Suspect]
     Active Substance: TEMOZOLOMIDE
     Indication: GLIOBLASTOMA
     Dosage: 140 MG, ONLY ONE DOSE
     Route: 048
     Dates: start: 201710, end: 201710

REACTIONS (8)
  - Glioblastoma [Fatal]
  - Mental status changes [Fatal]
  - Septic shock [Fatal]
  - Pain in extremity [Unknown]
  - Acute respiratory failure [Fatal]
  - Acute kidney injury [Fatal]
  - Stevens-Johnson syndrome [Fatal]
  - Gait inability [Unknown]

NARRATIVE: CASE EVENT DATE: 201710
